FAERS Safety Report 7598703-3 (Version None)
Quarter: 2011Q3

REPORT INFORMATION
  Report Type: 
  Country: None (occurrence: None)
  Receive Date: 20110711
  Receipt Date: 20110629
  Transmission Date: 20111222
  Serious: Yes (Hospitalization)
  Sender: FDA-Public Use
  Company Number: US-BIOGENIDEC-2011BI019868

PATIENT
  Age: 45 Year
  Sex: Female

DRUGS (2)
  1. AVONEX [Suspect]
     Indication: MULTIPLE SCLEROSIS
     Route: 030
     Dates: start: 20090119
  2. BUSPAR [Concomitant]
     Indication: ANXIETY

REACTIONS (4)
  - PNEUMONIA [None]
  - LUNG DISORDER [None]
  - MYALGIA [None]
  - PAIN [None]
